FAERS Safety Report 5835499-7 (Version None)
Quarter: 2008Q3

REPORT INFORMATION
  Report Type: 
  Country: None (occurrence: None)
  Receive Date: 20080806
  Receipt Date: 20060804
  Transmission Date: 20090109
  Serious: Yes (Death, Life-Threatening, Other)
  Sender: FDA-Public Use
  Company Number: PHMT2006CA01618

PATIENT
  Sex: Male

DRUGS (1)
  1. CLOZARIL [Suspect]
     Indication: SCHIZOPHRENIA
     Dosage: 50 MG TID AND 250 MG QHS
     Route: 048
     Dates: start: 19980505, end: 20061101

REACTIONS (4)
  - AGRANULOCYTOSIS [None]
  - MALIGNANT MELANOMA [None]
  - NEUTROPENIA [None]
  - SURGERY [None]
